FAERS Safety Report 5144945-6 (Version None)
Quarter: 2006Q4

REPORT INFORMATION
  Report Type: 
  Country: None (occurrence: None)
  Receive Date: 20061107
  Receipt Date: 20061023
  Transmission Date: 20070319
  Serious: Yes (Hospitalization)
  Sender: FDA-Public Use
  Company Number: PHBS2006US16502

PATIENT
  Age: 65 Year
  Sex: Male

DRUGS (6)
  1. LINEZOLID [Suspect]
     Indication: URINARY TRACT INFECTION ENTEROCOCCAL
     Dosage: 600 MG, BID
     Route: 048
  2. TACROLIMUS [Suspect]
  3. PREDNISONE TAB [Suspect]
  4. SULFAMETHOXAZOLE + TRIMETHOPRIM [Concomitant]
  5. VALGANCICLOVIR HCL [Concomitant]
  6. MYCOPHENOLATE MOFETIL [Suspect]
     Indication: RENAL TRANSPLANT
     Route: 065

REACTIONS (10)
  - CHILLS [None]
  - DRUG INTERACTION [None]
  - HAEMOGLOBIN DECREASED [None]
  - PANCYTOPENIA [None]
  - PLATELET COUNT DECREASED [None]
  - POLLAKIURIA [None]
  - RETICULOCYTE COUNT DECREASED [None]
  - TONGUE DISCOLOURATION [None]
  - URINARY TRACT INFECTION ENTEROCOCCAL [None]
  - WHITE BLOOD CELL COUNT DECREASED [None]
